FAERS Safety Report 12784483 (Version 1)
Quarter: 2016Q3

REPORT INFORMATION
  Report Type: Report from Study
  Country: US (occurrence: US)
  Receive Date: 20160927
  Receipt Date: 20160927
  Transmission Date: 20161109
  Serious: Yes (Hospitalization)
  Sender: FDA-Public Use
  Company Number: US-PFIZER INC-3005969

PATIENT
  Age: 7 Year
  Sex: Male
  Weight: 68.3 kg

DRUGS (16)
  1. METHOTREXATE SODIUM. [Concomitant]
     Active Substance: METHOTREXATE SODIUM
     Indication: ANAPLASTIC LARGE CELL LYMPHOMA T- AND NULL-CELL TYPES
     Dosage: PROPHASE (CYCLE = 5 DAYS), 7.5-12MG IT ON DAY 1 (AGE BASED DOSING)
     Route: 037
  2. METHOTREXATE SODIUM. [Concomitant]
     Active Substance: METHOTREXATE SODIUM
     Dosage: RSE B: CYCLES 2, 4 AND 6 (CYCLE= 21 DAYS), 3000MG/M2 IV OVER 3 HOURS ON DAY 1
     Route: 042
  3. CYTARABINE. [Concomitant]
     Active Substance: CYTARABINE
     Indication: ANAPLASTIC LARGE CELL LYMPHOMA T- AND NULL-CELL TYPES
     Dosage: PROPHASE (CYCLE = 5 DAYS),15-24MG IT ON DAY 1 (AGE BASED DOSING)
     Route: 037
  4. DEXAMETHASONE. [Concomitant]
     Active Substance: DEXAMETHASONE
     Indication: ANAPLASTIC LARGE CELL LYMPHOMA T- AND NULL-CELL TYPES
     Dosage: PROPHASE (CYCLE = 5 DAYS), 5MG/M2 PO QD ON DAYS 1-2, AND 5MG/M2 PO BID ON DAYS 3-5
     Route: 048
  5. METHOTREXATE SODIUM. [Concomitant]
     Active Substance: METHOTREXATE SODIUM
     Dosage: COURSE A: CYCLES 1, 3 AND 5 (CYCLE= 21 DAYS), 3000MG/M2 IV OVER 3 HOURS ON DAY 1
     Route: 042
  6. PF-02341066 [Suspect]
     Active Substance: CRIZOTINIB
     Dosage: COURSE B: CYCLES 2, 4 AND 6 (CYCLE= 21 DAYS), 165MG/M2 PO BID ON DAYS 1-21
     Route: 048
  7. HYDROCORTISONE. [Concomitant]
     Active Substance: HYDROCORTISONE
     Indication: ANAPLASTIC LARGE CELL LYMPHOMA T- AND NULL-CELL TYPES
     Dosage: PROPHASE (CYCLE = 5 DAYS), 7.5-12MG IT ON DAY 1 (AGE BASED DOSING)
     Route: 037
  8. PF-02341066 [Suspect]
     Active Substance: CRIZOTINIB
     Indication: ANAPLASTIC LARGE CELL LYMPHOMA T- AND NULL-CELL TYPES
     Dosage: COURSE A: CYCLES 1, 3 AND 5 (CYCLE= 21 DAYS), 165MG/M2 PO BID ON DAYS 1-21
     Route: 048
  9. DEXAMETHASONE. [Concomitant]
     Active Substance: DEXAMETHASONE
     Dosage: COURSE A: CYCLES 1, 3 AND 5 (CYCLE= 21 DAYS), 5MG/M2 PO BID ON DAYS 1-5
     Route: 048
  10. CYTARABINE. [Concomitant]
     Active Substance: CYTARABINE
     Dosage: COURSE A, 150MG/M2 IV OVER 1-30 MINUTES Q12 HOURS ON DAYS 4 AND 5 (TOTAL 4 DOSES)
     Route: 042
  11. VP-16 [Concomitant]
     Active Substance: ETOPOSIDE
     Indication: ANAPLASTIC LARGE CELL LYMPHOMA T- AND NULL-CELL TYPES
     Dosage: COURSE A, 100MG/M2 IV OVER 2 HOURS ON DAYS 4 AND 5
     Route: 042
  12. DOXORUBICIN HYDROCHLORIDE. [Concomitant]
     Active Substance: DOXORUBICIN HYDROCHLORIDE
     Indication: ANAPLASTIC LARGE CELL LYMPHOMA T- AND NULL-CELL TYPES
     Dosage: COURSE B: CYCLES 2, 4 AND 6 (CYCLE= 21 DAYS), 25MG/M2 IV OVER 1-15 MIN ON DAYS 4 AND 5
     Route: 042
  13. CYCLOPHOSPHAMIDE. [Concomitant]
     Active Substance: CYCLOPHOSPHAMIDE
     Indication: ANAPLASTIC LARGE CELL LYMPHOMA T- AND NULL-CELL TYPES
     Dosage: PROPHASE (CYCLE = 5 DAYS), 200MG/M2 IV OVER 15-30 MINUTES ON DAYS 1 AND 2
     Route: 042
  14. CYCLOPHOSPHAMIDE. [Concomitant]
     Active Substance: CYCLOPHOSPHAMIDE
     Dosage: COURSE B: CYCLES 2, 4 AND 6 (CYCLE= 21 DAYS), 200MG/M2 IV OVER 15-30 MINUTES ON DAYS 1-5
     Route: 042
  15. IFOSFAMIDE. [Concomitant]
     Active Substance: IFOSFAMIDE
     Indication: ANAPLASTIC LARGE CELL LYMPHOMA T- AND NULL-CELL TYPES
     Dosage: COURSE A: CYCLES 1, 3 AND 5 (CYCLE= 21 DAYS), 800MG/M2 IV OVER 60 MIN ON DAYS 1-5
     Route: 042
  16. DEXAMETHASONE. [Concomitant]
     Active Substance: DEXAMETHASONE
     Dosage: COURSE B: CYCLES 2, 4 AND 6 (CYCLE= 21 DAYS), 5MG/M2 PO BID ON DAYS 1-5
     Route: 048

REACTIONS (1)
  - Sepsis [Recovering/Resolving]

NARRATIVE: CASE EVENT DATE: 20140720
